FAERS Safety Report 6432834-6 (Version None)
Quarter: 2009Q4

REPORT INFORMATION
  Report Type: 
  Country: None (occurrence: None)
  Receive Date: 20091109
  Receipt Date: 20091030
  Transmission Date: 20100525
  Serious: Yes (Hospitalization)
  Sender: FDA-Public Use
  Company Number: B0598196A

PATIENT
  Sex: Female

DRUGS (7)
  1. VALTREX [Suspect]
     Indication: DRUG USE FOR UNKNOWN INDICATION
     Dosage: 1000MG THREE TIMES PER DAY
     Route: 048
     Dates: start: 20091007, end: 20091011
  2. HYPEN [Concomitant]
     Route: 048
     Dates: start: 20091007, end: 20091012
  3. METHYCOBAL [Concomitant]
     Route: 065
  4. MUCOSTA [Concomitant]
     Route: 048
  5. CALBLOCK [Concomitant]
     Route: 048
  6. ARTIST [Concomitant]
     Route: 048
  7. PREMINENT [Concomitant]
     Route: 048

REACTIONS (10)
  - ALTERED STATE OF CONSCIOUSNESS [None]
  - BLOOD ALBUMIN DECREASED [None]
  - BLOOD ALKALINE PHOSPHATASE INCREASED [None]
  - BLOOD CREATININE INCREASED [None]
  - BLOOD LACTATE DEHYDROGENASE INCREASED [None]
  - BLOOD UREA INCREASED [None]
  - C-REACTIVE PROTEIN INCREASED [None]
  - DECREASED APPETITE [None]
  - DYSARTHRIA [None]
  - PROTEIN TOTAL INCREASED [None]
